FAERS Safety Report 5888577-0 (Version None)
Quarter: 2008Q3

REPORT INFORMATION
  Report Type: 
  Country: None (occurrence: None)
  Receive Date: 20080916
  Receipt Date: 20080910
  Transmission Date: 20090109
  Serious: Yes (Hospitalization)
  Sender: FDA-Public Use
  Company Number: 2008SP018747

PATIENT
  Sex: Male

DRUGS (2)
  1. VIRAFERONPEG [Suspect]
     Indication: HEPATITIS C
     Dosage: 1.5 MCG/KG;QW;
  2. REBETOL [Suspect]
     Indication: HEPATITIS C
     Dosage: 5 DF; QD; 10 DF; QD;
     Dates: start: 20080910

REACTIONS (2)
  - ATAXIA [None]
  - LUNG DISORDER [None]
